FAERS Safety Report 10616099 (Version 2)
Quarter: 2014Q4

REPORT INFORMATION
  Report Type: Spontaneous
  Country: BR (occurrence: BR)
  Receive Date: 20141201
  Receipt Date: 20141202
  Transmission Date: 20150529
  Serious: Yes (Other)
  Sender: FDA-Public Use
  Company Number: BR-PFIZER INC-2014328211

PATIENT
  Sex: Female

DRUGS (1)
  1. SERTRALINE HCL [Suspect]
     Active Substance: SERTRALINE HYDROCHLORIDE
     Dosage: ONE ORAL TABLET ONLY ONE TIME
     Route: 048
     Dates: start: 2011, end: 2011

REACTIONS (7)
  - Memory impairment [Unknown]
  - Cataract [Unknown]
  - Dizziness [Unknown]
  - Hypertension [Unknown]
  - Dysentery [Unknown]
  - Visual acuity reduced [Unknown]
  - Malaise [Unknown]

NARRATIVE: CASE EVENT DATE: 201404
